FAERS Safety Report 8834780 (Version 1)
Quarter: 2012Q4

REPORT INFORMATION
  Report Type: Spontaneous
  Country: DK (occurrence: None)
  Receive Date: 20121009
  Receipt Date: 20121009
  Transmission Date: 20130627
  Serious: Yes (Other)
  Sender: FDA-Public Use
  Company Number: 2012MA011866

PATIENT
  Age: 55 Year
  Sex: Female

DRUGS (2)
  1. RAMIPRIL [Suspect]
     Indication: HYPERTENSION ARTERIAL
     Route: 048
     Dates: start: 20111024, end: 20120112
  2. NEBIVOLOL [Suspect]
     Indication: HYPERTENSION ARTERIAL
     Dates: start: 20120105, end: 20120112

REACTIONS (4)
  - Dyspnoea [None]
  - Dyspepsia [None]
  - Peripheral coldness [None]
  - Drug interaction [None]
